FAERS Safety Report 22877196 (Version 2)
Quarter: 2023Q4

REPORT INFORMATION
  Report Type: Spontaneous
  Country: US (occurrence: US)
  Receive Date: 20230829
  Receipt Date: 20231128
  Transmission Date: 20240110
  Serious: No
  Sender: FDA-Public Use
  Company Number: US-SA-SAC20230825000257

PATIENT
  Age: 58 Year
  Sex: Male

DRUGS (3)
  1. DUPIXENT [Suspect]
     Active Substance: DUPILUMAB
     Indication: Dermatitis atopic
     Dosage: 300 MG, QOW
     Route: 058
     Dates: end: 2023
  2. DUPIXENT [Suspect]
     Active Substance: DUPILUMAB
     Indication: Psoriasis
  3. DUPIXENT [Suspect]
     Active Substance: DUPILUMAB
     Indication: Rosacea

REACTIONS (21)
  - Diarrhoea [Unknown]
  - Fatigue [Unknown]
  - Eye swelling [Unknown]
  - Abdominal discomfort [Unknown]
  - Vision blurred [Unknown]
  - Periorbital swelling [Unknown]
  - Pruritus [Recovering/Resolving]
  - Skin burning sensation [Unknown]
  - Pain [Not Recovered/Not Resolved]
  - Skin haemorrhage [Unknown]
  - Skin weeping [Unknown]
  - Scratch [Unknown]
  - Skin ulcer [Unknown]
  - Dry skin [Unknown]
  - Skin fissures [Unknown]
  - Skin exfoliation [Unknown]
  - Sleep disorder due to a general medical condition [Unknown]
  - Rash [Unknown]
  - Dermatitis atopic [Not Recovered/Not Resolved]
  - Product use in unapproved indication [Unknown]
  - Intentional product misuse [Unknown]

NARRATIVE: CASE EVENT DATE: 20231101
